FAERS Safety Report 6339597-3 (Version None)
Quarter: 2009Q3

REPORT INFORMATION
  Report Type: 
  Country: None (occurrence: None)
  Receive Date: 20090821
  Receipt Date: 20090529
  Transmission Date: 20100115
  Serious: No
  Sender: FDA-Public Use
  Company Number: 8047054

PATIENT
  Age: 28 Year
  Sex: Male
  Weight: 49.5 kg

DRUGS (5)
  1. CIMZIA [Suspect]
     Indication: CROHN'S DISEASE
     Dosage: 400 MG SC
     Route: 058
     Dates: start: 20090527
  2. AZASAN [Concomitant]
  3. PENTASA [Concomitant]
  4. ENTOCORT EC [Concomitant]
  5. VICODIN ES [Concomitant]

REACTIONS (4)
  - ABDOMINAL DISCOMFORT [None]
  - ABDOMINAL PAIN [None]
  - DYSPEPSIA [None]
  - TENDERNESS [None]
